FAERS Safety Report 15939478 (Version 1)
Quarter: 2019Q1

REPORT INFORMATION
  Report Type: Report from Study
  Country: HN (occurrence: HN)
  Receive Date: 20190208
  Receipt Date: 20190208
  Transmission Date: 20190417
  Serious: Yes (Hospitalization)
  Sender: FDA-Public Use
  Company Number: HN-SAKK-2019SA025788AA

PATIENT
  Age: 45 Year
  Sex: Female

DRUGS (3)
  1. IRBESARTAN. [Suspect]
     Active Substance: IRBESARTAN
     Indication: HYPERTENSION
     Dosage: 1 DF (150 MG), QD
     Route: 048
     Dates: start: 2017
  2. GLIMEPIRIDE/METFORMIN [Suspect]
     Active Substance: GLIMEPIRIDE\METFORMIN
     Indication: DIABETES MELLITUS
     Dosage: 2 DF (2 ORAL TABLETS OF 4 MG OF GLIMEPIRIDE + 1000 MG OF METFORMIN EVERY 24 HOURS), QD
     Route: 048
     Dates: start: 2016
  3. GLIMEPIRIDE/METFORMIN [Suspect]
     Active Substance: GLIMEPIRIDE\METFORMIN
     Dosage: 1 DF (4 MG OF GLIMEPIRIDE + 1000 MG OF METFORMIN), QD
     Route: 048

REACTIONS (2)
  - Hyperglycaemia [Recovered/Resolved]
  - Urinary tract infection [Recovered/Resolved]

NARRATIVE: CASE EVENT DATE: 201707
